FAERS Safety Report 6767216-0 (Version None)
Quarter: 2010Q2

REPORT INFORMATION
  Report Type: 
  Country: None (occurrence: None)
  Receive Date: 20100611
  Receipt Date: 20100611
  Transmission Date: 20101027
  Serious: Yes (Hospitalization)
  Sender: FDA-Public Use
  Company Number: None

PATIENT
  Age: 62 Year
  Sex: Male

DRUGS (2)
  1. LISINOPRIL AND HYDROCHLOROTHIAZIDE [Suspect]
     Indication: HYPERTENSION
     Dosage: 1/2 TAB EVERY DAY PO
     Route: 048
     Dates: start: 20100106, end: 20100216
  2. CLONIDINE [Suspect]
     Indication: HYPERTENSION
     Dosage: 0.2 MG TID PO
     Route: 048
     Dates: start: 20100106, end: 20100216

REACTIONS (3)
  - HYPOPHAGIA [None]
  - HYPOTENSION [None]
  - RENAL FAILURE ACUTE [None]
